FAERS Safety Report 4654164-5 (Version None)
Quarter: 2005Q2

REPORT INFORMATION
  Report Type: 
  Country: None (occurrence: None)
  Receive Date: 20050505
  Receipt Date: 20020819
  Transmission Date: 20051028
  Serious: Yes (Hospitalization)
  Sender: FDA-Public Use
  Company Number: CA-SANOFI-SYNTHELABO-D01200200374

PATIENT
  Sex: Male
  Weight: 58.2 kg

DRUGS (13)
  1. ALFUZOSIN [Suspect]
     Route: 048
     Dates: start: 20010924, end: 20030915
  2. CLAVULIN [Concomitant]
     Dosage: 875 MG
     Route: 065
     Dates: start: 20011126, end: 20011206
  3. FLUVIRAL [Concomitant]
     Dosage: 1 DOSE
     Route: 065
     Dates: start: 20011213, end: 20011213
  4. NASONEX [Concomitant]
     Dosage: 100 MG
     Route: 045
     Dates: start: 20011126, end: 20011213
  5. CLONAZEPAM [Concomitant]
     Dosage: 2 MG
     Route: 065
     Dates: start: 19950101
  6. SYNTHROID [Concomitant]
     Dosage: 0.05 MG
     Route: 065
     Dates: start: 19950101
  7. ASPIRIN [Concomitant]
     Dosage: 81 MG
     Route: 065
     Dates: start: 19980101
  8. SCOPOLAMINE [Concomitant]
     Dosage: 1 CAP
     Dates: start: 19980101
  9. PANTOPRAZOLE SODIUM [Concomitant]
     Dosage: 40 MG
     Route: 065
     Dates: start: 19980101
  10. FLOVENT [Concomitant]
     Dosage: 125 MG
     Route: 065
     Dates: start: 19991109
  11. COMBIVENT [Concomitant]
     Dosage: 110 MG
     Route: 065
     Dates: start: 19990917
  12. MENOMUNE-A/C/Y/W-135 [Concomitant]
     Dosage: 1 DOSE
     Route: 065
     Dates: start: 20011119, end: 20011119
  13. LEVSIN [Concomitant]
     Route: 065

REACTIONS (3)
  - CHOLELITHIASIS [None]
  - PANCREATITIS [None]
  - PANCREATITIS ACUTE [None]
